FAERS Safety Report 7412337-2 (Version None)
Quarter: 2011Q2

REPORT INFORMATION
  Report Type: 
  Country: None (occurrence: None)
  Receive Date: 20110413
  Receipt Date: 20110406
  Transmission Date: 20111010
  Serious: Yes (Life-Threatening, Hospitalization, Disabling)
  Sender: FDA-Public Use
  Company Number: FR-CELGENEUS-056-50794-11040789

PATIENT
  Sex: Female

DRUGS (14)
  1. ALPRAZOLAM [Concomitant]
     Route: 065
  2. NEUPOGEN [Suspect]
     Indication: NEUTROPENIA
     Dosage: 30 INTERNATIONAL UNITS MILLIONS
     Route: 051
     Dates: start: 20060823
  3. CYCLOPHOSPHAMIDE [Suspect]
     Route: 051
     Dates: start: 20061123
  4. FLUDARABINE [Suspect]
     Dosage: 25 MILLIGRAM
     Route: 065
     Dates: start: 20061123
  5. RITUXIMAB [Suspect]
     Route: 065
     Dates: start: 20060412
  6. BACTRIM [Concomitant]
     Route: 065
  7. VALACICLOVIR [Concomitant]
     Route: 065
  8. CYCLOPHOSPHAMIDE [Suspect]
     Route: 051
     Dates: start: 20060412
  9. RITUXIMAB [Suspect]
     Route: 065
     Dates: start: 20061123
  10. VIDAZA [Suspect]
     Indication: B-CELL LYMPHOMA
     Route: 050
  11. NEUPOGEN [Suspect]
     Dosage: 30 INTERNATIONAL UNITS MILLIONS
     Route: 051
     Dates: start: 20061023
  12. FLUDARABINE [Suspect]
     Dosage: 25 MILLIGRAM
     Route: 065
     Dates: start: 20060823
  13. PEGFILGRASTIM [Concomitant]
     Route: 065
  14. ZOLPIDEM [Concomitant]
     Route: 065

REACTIONS (2)
  - LUNG DISORDER [None]
  - PULMONARY FIBROSIS [None]
